FAERS Safety Report 5311781-7 (Version None)
Quarter: 2007Q2

REPORT INFORMATION
  Report Type: 
  Country: None (occurrence: None)
  Receive Date: 20070430
  Receipt Date: 20060303
  Transmission Date: 20071010
  Serious: No
  Sender: FDA-Public Use
  Company Number: 2006UW03714

PATIENT
  Age: 38 Year
  Sex: Male

DRUGS (1)
  1. NEXIUM [Suspect]
     Route: 048

REACTIONS (1)
  - INTENTIONAL DRUG MISUSE [None]
